FAERS Safety Report 20389319 (Version 1)
Quarter: 2022Q1

REPORT INFORMATION
  Report Type: Spontaneous
  Country: US (occurrence: US)
  Receive Date: 20220128
  Receipt Date: 20220128
  Transmission Date: 20220424
  Serious: No
  Sender: FDA-Public Use
  Company Number: US-ALLERGAN-2111162US

PATIENT
  Sex: Female

DRUGS (1)
  1. BOTOX [Suspect]
     Active Substance: ONABOTULINUMTOXINA
     Indication: Migraine
     Dosage: UNK, SINGLE
     Route: 065
     Dates: start: 20210303, end: 20210303

REACTIONS (2)
  - Skin disorder [Not Recovered/Not Resolved]
  - Face lift [Not Recovered/Not Resolved]

NARRATIVE: CASE EVENT DATE: 20210301
